FAERS Safety Report 16759083 (Version 1)
Quarter: 2019Q4

REPORT INFORMATION
  Report Type: Spontaneous
  Country: US (occurrence: US)
  Receive Date: 20190829
  Receipt Date: 20190829
  Transmission Date: 20200122
  Serious: No
  Sender: FDA-Public Use
  Company Number: None

PATIENT
  Age: 67 Year
  Sex: Female
  Weight: 47.25 kg

DRUGS (3)
  1. PREMARIN CREAM FOR LUBRICATION [Concomitant]
  2. TRANSDERM SCOP [Suspect]
     Active Substance: SCOPOLAMINE
     Indication: PROPHYLAXIS AGAINST MOTION SICKNESS
     Dosage: ?          OTHER FREQUENCY:EVERY 3 DAYS;?
     Route: 062
     Dates: start: 20190718, end: 20190804
  3. RESTASIS EYE DROPS FOR LUBRICATION [Concomitant]

REACTIONS (7)
  - Memory impairment [None]
  - Withdrawal syndrome [None]
  - Nausea [None]
  - Depression [None]
  - Hypophagia [None]
  - Headache [None]
  - Thinking abnormal [None]

NARRATIVE: CASE EVENT DATE: 20190805
